FAERS Safety Report 7860592-7 (Version None)
Quarter: 2011Q4

REPORT INFORMATION
  Report Type: 
  Country: None (occurrence: None)
  Receive Date: 20111027
  Receipt Date: 20111020
  Transmission Date: 20120403
  Serious: Yes (Other)
  Sender: FDA-Public Use
  Company Number: GB-JNJFOC-20111009904

PATIENT
  Age: 58 Year
  Sex: Male

DRUGS (1)
  1. NICORETTE [Suspect]
     Indication: PRODUCT USED FOR UNKNOWN INDICATION
     Dosage: FOR SIX YEARS
     Route: 065

REACTIONS (3)
  - LYMPHOMA [None]
  - DEPENDENCE [None]
  - INTENTIONAL DRUG MISUSE [None]
